FAERS Safety Report 7277332-5 (Version None)
Quarter: 2011Q1

REPORT INFORMATION
  Report Type: 
  Country: None (occurrence: None)
  Receive Date: 20110131
  Receipt Date: 20110119
  Transmission Date: 20110831
  Serious: Yes (Hospitalization)
  Sender: FDA-Public Use
  Company Number: 2011SP002515

PATIENT
  Age: 1 Day

DRUGS (3)
  1. MIRTAZAPINE [Suspect]
     Indication: DRUG EXPOSURE DURING PREGNANCY
     Dosage: TRPL
     Route: 064
  2. SUBUTEX [Suspect]
     Indication: DRUG EXPOSURE DURING PREGNANCY
     Dosage: TRPL
     Route: 064
  3. LEXOMIL (BROMAZEPAM) [Suspect]
     Indication: DRUG EXPOSURE DURING PREGNANCY
     Dosage: TRPL
     Route: 064

REACTIONS (3)
  - DRUG WITHDRAWAL SYNDROME NEONATAL [None]
  - POSTMATURE BABY [None]
  - MATERNAL DRUGS AFFECTING FOETUS [None]
